FAERS Safety Report 18350015 (Version 1)
Quarter: 2020Q4

REPORT INFORMATION
  Report Type: Spontaneous
  Country: CA (occurrence: CA)
  Receive Date: 20201006
  Receipt Date: 20201006
  Transmission Date: 20210114
  Serious: Yes (Other)
  Sender: FDA-Public Use
  Company Number: CA-JNJFOC-20200947158

PATIENT
  Age: 62 Year
  Sex: Male
  Weight: 87 kg

DRUGS (3)
  1. REMICADE [Suspect]
     Active Substance: INFLIXIMAB
     Indication: COLITIS ULCERATIVE
     Route: 042
  2. CISPLATIN. [Suspect]
     Active Substance: CISPLATIN
     Indication: THROAT CANCER
     Route: 065
  3. DOCETAXEL. [Suspect]
     Active Substance: DOCETAXEL
     Indication: THROAT CANCER
     Route: 042

REACTIONS (5)
  - X-ray abnormal [Recovered/Resolved]
  - Postoperative wound infection [Unknown]
  - Swelling face [Recovered/Resolved]
  - Spinal cord oedema [Recovered/Resolved]
  - Pharyngeal swelling [Recovered/Resolved]
